FAERS Safety Report 11076587 (Version 1)
Quarter: 2015Q2

REPORT INFORMATION
  Report Type: Spontaneous
  Country: US (occurrence: US)
  Receive Date: 20150429
  Receipt Date: 20150429
  Transmission Date: 20150821
  Serious: No
  Sender: FDA-Public Use
  Company Number: US-TEVA-555407USA

PATIENT
  Age: 58 Year
  Sex: Male
  Weight: 86.26 kg

DRUGS (2)
  1. PROAIR HFA [Suspect]
     Active Substance: ALBUTEROL SULFATE
     Indication: WHEEZING
  2. PROAIR HFA [Suspect]
     Active Substance: ALBUTEROL SULFATE
     Indication: COUGH
     Dosage: TWO PUFFS EVERY FOUR TO SIX HOURS AS NEEDED
     Route: 055
     Dates: start: 20150413

REACTIONS (4)
  - Dysphonia [Unknown]
  - Breath sounds abnormal [Unknown]
  - Initial insomnia [Unknown]
  - Rales [Unknown]

NARRATIVE: CASE EVENT DATE: 20150413
